FAERS Safety Report 12539830 (Version 1)
Quarter: 2016Q3

REPORT INFORMATION
  Report Type: Spontaneous
  Country: JP (occurrence: JP)
  Receive Date: 20160708
  Receipt Date: 20160708
  Transmission Date: 20161109
  Serious: Yes (Life-Threatening)
  Sender: FDA-Public Use
  Company Number: JP-ASTRAZENECA-2016SE73883

PATIENT
  Age: 41 Year
  Sex: Male
  Weight: 50 kg

DRUGS (6)
  1. SEROQUEL [Suspect]
     Active Substance: QUETIAPINE FUMARATE
     Dosage: 1400.0MG ONCE/SINGLE ADMINISTRATION
     Route: 048
     Dates: start: 20160630, end: 20160630
  2. HYPNOTIC/ ANTIANXIETY DRUG [Concomitant]
  3. ANTIEPILEPTIC DRUG [Concomitant]
  4. ANTIDEPRESSANT DRUG [Concomitant]
     Active Substance: UNSPECIFIED INGREDIENT
  5. ANTIACID [Concomitant]
  6. ANTIPARKINSONIAN DRUG OF 2 KINDS [Concomitant]

REACTIONS (2)
  - Intentional overdose [Unknown]
  - Suicide attempt [Unknown]

NARRATIVE: CASE EVENT DATE: 20160630
